FAERS Safety Report 4999520-0 (Version None)
Quarter: 2006Q2

REPORT INFORMATION
  Report Type: 
  Country: None (occurrence: None)
  Receive Date: 20060511
  Receipt Date: 20060331
  Transmission Date: 20061013
  Serious: Yes (Other)
  Sender: FDA-Public Use
  Company Number: ES-GILEAD-2006-0009408

PATIENT
  Sex: Male
  Weight: 52 kg

DRUGS (8)
  1. VIREAD [Suspect]
     Indication: HIV INFECTION
     Route: 048
     Dates: start: 20020723, end: 20060220
  2. EPIVIR [Concomitant]
     Indication: HIV INFECTION
     Route: 048
     Dates: start: 20020723, end: 20060220
  3. KALETRA [Concomitant]
     Indication: HIV INFECTION
     Route: 048
     Dates: start: 20020723, end: 20050601
  4. KALETRA [Concomitant]
     Route: 048
     Dates: start: 20050601, end: 20060220
  5. CITALOPRAM HYDROBROMIDE [Concomitant]
     Indication: MENTAL DISORDER
     Route: 048
     Dates: start: 20000101
  6. LEXATIN [Concomitant]
     Indication: MENTAL DISORDER
     Route: 048
     Dates: start: 20000101
  7. LANTANON [Concomitant]
     Indication: MENTAL DISORDER
     Route: 048
     Dates: start: 20000101
  8. LORAMET [Concomitant]
     Indication: MENTAL DISORDER
     Route: 048
     Dates: start: 20000101

REACTIONS (6)
  - ANKLE FRACTURE [None]
  - BONE PAIN [None]
  - HYPERALBUMINAEMIA [None]
  - HYPOPHOSPHATAEMIA [None]
  - OSTEOMALACIA [None]
  - RENAL FAILURE [None]
